FAERS Safety Report 5264845-0 (Version None)
Quarter: 2007Q1

REPORT INFORMATION
  Report Type: 
  Country: None (occurrence: None)
  Receive Date: 20070314
  Receipt Date: 20070302
  Transmission Date: 20070707
  Serious: Yes (Hospitalization)
  Sender: FDA-Public Use
  Company Number: JP-JPN-A200700632

PATIENT
  Age: 55 Day
  Sex: Female
  Weight: 0.05 kg

DRUGS (9)
  1. FLUTICASONE PROPIONATE [Suspect]
     Indication: BRONCHOPULMONARY DYSPLASIA
     Route: 055
  2. UNKNOWN DRUG [Concomitant]
     Route: 065
  3. DOPAMINE HCL [Concomitant]
     Route: 065
  4. DOBUTAMINE [Concomitant]
     Route: 065
  5. ALBUMIN (HUMAN) [Concomitant]
     Route: 065
  6. INDOMETHACIN [Concomitant]
     Route: 065
  7. AMPICILLIN [Concomitant]
     Indication: PROPHYLAXIS
     Route: 065
  8. CEFOTAXIME [Concomitant]
     Indication: PROPHYLAXIS
     Route: 065
  9. AMINOPHYLLINE [Concomitant]
     Route: 065

REACTIONS (9)
  - ADRENAL CORTICAL INSUFFICIENCY [None]
  - ADRENAL INSUFFICIENCY [None]
  - ADRENAL SUPPRESSION [None]
  - BLOOD CORTICOTROPHIN ABNORMAL [None]
  - GENERALISED OEDEMA [None]
  - HYPERKALAEMIA [None]
  - HYPONATRAEMIA [None]
  - HYPOTENSION [None]
  - OLIGURIA [None]
